FAERS Safety Report 4644292-2 (Version None)
Quarter: 2005Q2

REPORT INFORMATION
  Report Type: 
  Country: None (occurrence: None)
  Receive Date: 20050422
  Receipt Date: 20050414
  Transmission Date: 20051028
  Serious: Yes (Other)
  Sender: FDA-Public Use
  Company Number: 2005059805

PATIENT
  Age: 51 Year
  Sex: Male
  Weight: 104.7 kg

DRUGS (1)
  1. NICORETTE [Suspect]
     Indication: SMOKING CESSATION THERAPY
     Dosage: 2 SPRAYS, NASAL
     Route: 045
     Dates: start: 20040529, end: 20040602

REACTIONS (2)
  - AGEUSIA [None]
  - ANOSMIA [None]
